FAERS Safety Report 16741353 (Version 1)
Quarter: 2019Q4

REPORT INFORMATION
  Report Type: Spontaneous
  Country: US (occurrence: US)
  Receive Date: 20190826
  Receipt Date: 20190826
  Transmission Date: 20200122
  Serious: Yes (Hospitalization)
  Sender: FDA-Public Use
  Company Number: None

PATIENT
  Age: 58 Year
  Sex: Female

DRUGS (1)
  1. FORTEO [Suspect]
     Active Substance: TERIPARATIDE
     Indication: SENILE OSTEOPOROSIS
     Route: 048
     Dates: start: 20180126

REACTIONS (4)
  - Hospitalisation [None]
  - Therapy cessation [None]
  - Muscle spasms [None]
  - Generalised tonic-clonic seizure [None]
